FAERS Safety Report 20122706 (Version 1)
Quarter: 2021Q4

REPORT INFORMATION
  Report Type: Spontaneous
  Country: CN (occurrence: CN)
  Receive Date: 20211128
  Receipt Date: 20211128
  Transmission Date: 20220304
  Serious: Yes (Other)
  Sender: FDA-Public Use
  Company Number: CN-ABBVIE-21K-035-4176769-00

PATIENT
  Age: 67 Year
  Sex: Female
  Weight: 56 kg

DRUGS (3)
  1. VALPROIC ACID [Suspect]
     Active Substance: VALPROIC ACID
     Indication: Generalised tonic-clonic seizure
     Route: 048
     Dates: start: 20200311, end: 20200313
  2. VALPROIC ACID [Suspect]
     Active Substance: VALPROIC ACID
     Route: 048
     Dates: start: 20200314, end: 20200317
  3. VALPROIC ACID [Suspect]
     Active Substance: VALPROIC ACID
     Route: 048
     Dates: start: 20200317, end: 20200318

REACTIONS (3)
  - Papule [Recovering/Resolving]
  - Rash erythematous [Recovering/Resolving]
  - Pruritus [Recovering/Resolving]

NARRATIVE: CASE EVENT DATE: 20200314
